FAERS Safety Report 13075694 (Version 2)
Quarter: 2017Q1

REPORT INFORMATION
  Report Type: Report from Study
  Country: US (occurrence: US)
  Receive Date: 20161230
  Receipt Date: 20170213
  Transmission Date: 20170428
  Serious: Yes (Life-Threatening, Hospitalization)
  Sender: FDA-Public Use
  Company Number: US-NOVOPROD-524592

PATIENT
  Age: 15 Year
  Sex: Female
  Weight: 99 kg

DRUGS (13)
  1. TRILEPTAL [Concomitant]
     Active Substance: OXCARBAZEPINE
     Indication: PRODUCT USED FOR UNKNOWN INDICATION
     Dosage: UNK
  2. METFORMIN [Concomitant]
     Active Substance: METFORMIN HYDROCHLORIDE
     Indication: PRODUCT USED FOR UNKNOWN INDICATION
     Dosage: 1000 MG, QD
     Route: 048
  3. NORDITROPIN [Suspect]
     Active Substance: SOMATROPIN
     Dosage: 1.5 MG, UNK, FOR ONE WEEK
     Route: 058
     Dates: start: 20091202, end: 20091209
  4. NORDITROPIN [Suspect]
     Active Substance: SOMATROPIN
     Dosage: 2.0 MG, UNK, FOR ONE WEEK
     Route: 058
     Dates: start: 20091210, end: 20091217
  5. LEVOTHYROXINE. [Concomitant]
     Active Substance: LEVOTHYROXINE
     Indication: PRODUCT USED FOR UNKNOWN INDICATION
     Dosage: 100 ?G, QD
     Route: 048
  6. RELPAX [Concomitant]
     Active Substance: ELETRIPTAN HYDROBROMIDE
     Indication: PRODUCT USED FOR UNKNOWN INDICATION
     Dosage: UNK
  7. NORDITROPIN [Suspect]
     Active Substance: SOMATROPIN
     Dosage: 2.5 MG, UNK, SIX TIMES A WEEK
     Route: 058
     Dates: start: 20091218
  8. VIVELLE-DOT [Concomitant]
     Active Substance: ESTRADIOL
     Indication: PRODUCT USED FOR UNKNOWN INDICATION
     Dosage: 2 TIMES A WEEK PATCH, ALTERNATE WITH COMBIPATCH
     Route: 062
  9. NORDITROPIN [Suspect]
     Active Substance: SOMATROPIN
     Indication: GROWTH HORMONE DEFICIENCY
     Dosage: 0.5 MG, UNK, FOR ONE WEEK
     Route: 058
     Dates: start: 20091116, end: 20091123
  10. NORDITROPIN [Suspect]
     Active Substance: SOMATROPIN
     Dosage: 1.0 MG, UNK, FOR ONE WEEK
     Route: 058
     Dates: start: 20091124, end: 20091201
  11. HYDROCORTISONE. [Concomitant]
     Active Substance: HYDROCORTISONE
     Indication: PRODUCT USED FOR UNKNOWN INDICATION
     Dosage: 10 MG, BID AT MORNING AND BEDTIME
     Route: 048
  12. COMBIPATCH [Concomitant]
     Active Substance: ESTRADIOL\NORETHINDRONE ACETATE
     Indication: PRODUCT USED FOR UNKNOWN INDICATION
     Dosage: 0.05 / 0.14 PATCH 2 TIMES A WEEK, ALTERNATE WITH VIVELLEDOT PATCH
     Route: 062
  13. CELEXA [Concomitant]
     Active Substance: CITALOPRAM HYDROBROMIDE
     Indication: PRODUCT USED FOR UNKNOWN INDICATION
     Dosage: UNK

REACTIONS (2)
  - Cardiac arrest [Recovered/Resolved]
  - Intentional overdose [Recovered/Resolved]

NARRATIVE: CASE EVENT DATE: 20130125
